FAERS Safety Report 24377907 (Version 1)
Quarter: 2024Q3

REPORT INFORMATION
  Report Type: Spontaneous
  Country: US (occurrence: None)
  Receive Date: 20240927
  Receipt Date: 20240927
  Transmission Date: 20241017
  Serious: Yes (Life-Threatening)
  Sender: Public
  Company Number: None

PATIENT
  Age: 77 Year
  Sex: Male
  Weight: 83 kg

DRUGS (1)
  1. METOPROLOL SUCCINATE [Suspect]
     Active Substance: METOPROLOL SUCCINATE
     Indication: Cardiac arrest
     Dosage: 50.00 MG DAILY ORAL ?
     Route: 048

REACTIONS (2)
  - Cardiac arrest [None]
  - Drug interaction [None]

NARRATIVE: CASE EVENT DATE: 20231102
